FAERS Safety Report 7622982-7 (Version None)
Quarter: 2011Q3

REPORT INFORMATION
  Report Type: 
  Country: None (occurrence: None)
  Receive Date: 20110719
  Receipt Date: 20110719
  Transmission Date: 20111222
  Serious: Yes (Life-Threatening, Hospitalization, Other)
  Sender: FDA-Public Use
  Company Number: None

PATIENT
  Age: 78 Year
  Sex: Female
  Weight: 92 kg

DRUGS (3)
  1. ASPIRIN [Concomitant]
  2. DABIGATRAN 150MG X [Suspect]
     Dosage: 150MG DAILY PO
     Route: 048
  3. PLAVIX [Concomitant]

REACTIONS (2)
  - GASTROINTESTINAL HAEMORRHAGE [None]
  - DISORIENTATION [None]
